FAERS Safety Report 23553890 (Version 2)
Quarter: 2024Q1

REPORT INFORMATION
  Report Type: Spontaneous
  Country: US (occurrence: US)
  Receive Date: 20240222
  Receipt Date: 20240223
  Transmission Date: 20240410
  Serious: Yes (Hospitalization)
  Sender: FDA-Public Use
  Company Number: US-PFIZER INC-202400046548

PATIENT
  Age: 75 Year
  Sex: Female
  Weight: 63.1 kg

DRUGS (1)
  1. BUPIVACAINE HYDROCHLORIDE [Suspect]
     Active Substance: BUPIVACAINE HYDROCHLORIDE\BUPIVACAINE HYDROCHLORIDE ANHYDROUS
     Indication: Local anaesthesia
     Dosage: UNK
     Dates: start: 20240126, end: 20240201

REACTIONS (1)
  - Peripheral ischaemia [Unknown]
